FAERS Safety Report 5296185-8 (Version None)
Quarter: 2007Q2

REPORT INFORMATION
  Report Type: 
  Country: None (occurrence: None)
  Receive Date: 20070413
  Receipt Date: 20070410
  Transmission Date: 20071010
  Serious: Yes (Hospitalization)
  Sender: FDA-Public Use
  Company Number: US-GLAXOSMITHKLINE-A0646611A

PATIENT
  Age: 20 Year
  Sex: Female

DRUGS (7)
  1. IMITREX [Suspect]
     Indication: MIGRAINE
     Dosage: 100MG AS REQUIRED
     Route: 048
     Dates: start: 20061101
  2. IMITREX [Suspect]
     Dosage: 20MG AS REQUIRED
     Route: 045
     Dates: end: 20060101
  3. ULTRAM [Concomitant]
  4. DARVOCET [Concomitant]
  5. VICODIN [Concomitant]
  6. ORTHO TRI-CYCLEN [Concomitant]
  7. NAPROSYN [Concomitant]

REACTIONS (3)
  - ABDOMINAL PAIN [None]
  - DIARRHOEA HAEMORRHAGIC [None]
  - INTESTINAL ISCHAEMIA [None]
